FAERS Safety Report 8048453-4 (Version None)
Quarter: 2012Q1

REPORT INFORMATION
  Report Type: 
  Country: None (occurrence: None)
  Receive Date: 20120117
  Receipt Date: 20120110
  Transmission Date: 20120608
  Serious: No
  Sender: FDA-Public Use
  Company Number: US-PFIZER INC-2012007683

PATIENT
  Sex: Male
  Weight: 78.912 kg

DRUGS (6)
  1. METOPROLOL [Concomitant]
     Indication: HYPERTENSION
     Dosage: 100 MG, 2X/DAY
     Route: 048
  2. LEVOTHYROXINE [Concomitant]
     Indication: THYROID OPERATION
     Dosage: 100 UG, DAILY
     Route: 048
  3. AMLODIPINE [Concomitant]
     Indication: HYPERTENSION
     Dosage: 10 MG, DAILY
     Route: 048
  4. LISINOPRIL [Concomitant]
     Indication: HYPERTENSION
     Dosage: 10 MG, DAILY
     Route: 048
  5. INSULIN DETEMIR [Concomitant]
     Indication: DIABETES MELLITUS
     Dosage: 8 DF, DAILY
  6. SUTENT [Suspect]
     Indication: RENAL CANCER
     Dosage: 50 MG, 1X/DAY
     Route: 048
     Dates: start: 20091201

REACTIONS (14)
  - EPISTAXIS [None]
  - PAIN IN EXTREMITY [None]
  - GLOSSODYNIA [None]
  - DIARRHOEA [None]
  - DYSPEPSIA [None]
  - SKIN LESION [None]
  - SKIN INJURY [None]
  - HEADACHE [None]
  - TOOTHACHE [None]
  - HYPERTENSION [None]
  - ORAL PAIN [None]
  - THYROID DISORDER [None]
  - ASTHENIA [None]
  - DECREASED APPETITE [None]
